FAERS Safety Report 16222819 (Version 1)
Quarter: 2019Q2

REPORT INFORMATION
  Report Type: Spontaneous
  Country: TW (occurrence: TW)
  Receive Date: 20190422
  Receipt Date: 20190422
  Transmission Date: 20190711
  Serious: Yes (Other)
  Sender: FDA-Public Use
  Company Number: TW-ELI_LILLY_AND_COMPANY-TW201904005749

PATIENT
  Age: 58 Year
  Sex: Male

DRUGS (2)
  1. FOLFOX [Concomitant]
     Active Substance: FLUOROURACIL\LEUCOVORIN CALCIUM\OXALIPLATIN
     Indication: COLORECTAL CANCER
     Dosage: UNK
     Dates: start: 20190311
  2. CYRAMZA [Suspect]
     Active Substance: RAMUCIRUMAB
     Indication: COLORECTAL CANCER
     Dosage: 8 MG/KG, 2/M
     Route: 042
     Dates: start: 20190311

REACTIONS (2)
  - Haemoptysis [Unknown]
  - Vomiting [Unknown]

NARRATIVE: CASE EVENT DATE: 20190410
